FAERS Safety Report 6956506-4 (Version None)
Quarter: 2010Q3

REPORT INFORMATION
  Report Type: 
  Country: None (occurrence: None)
  Receive Date: 20100830
  Receipt Date: 20100818
  Transmission Date: 20110219
  Serious: Yes (Death, Other)
  Sender: FDA-Public Use
  Company Number: JP-PFIZER INC-2010066507

PATIENT
  Age: 62 Year
  Sex: Male
  Weight: 59 kg

DRUGS (16)
  1. SUNITINIB MALATE [Suspect]
     Indication: RENAL CANCER
     Dosage: 50 MG, 1X/DAY
     Route: 048
     Dates: start: 20100317, end: 20100326
  2. DIGOXIN [Concomitant]
     Indication: ATRIAL FIBRILLATION
     Dosage: 0.062 MG, ALTERNATE DAY
     Route: 048
     Dates: start: 20061001
  3. RIZE [Concomitant]
     Indication: INSOMNIA
     Dosage: 5 MG, 1X/DAY
     Route: 048
     Dates: start: 20080201
  4. CALCIUM CARBONATE [Concomitant]
     Indication: HYPERPARATHYROIDISM SECONDARY
     Dosage: 500 MG, 3X/DAY
     Route: 048
     Dates: start: 20050101
  5. MYSLEE [Concomitant]
     Indication: INSOMNIA
     Dosage: 10 MG, 1X/DAY
     Route: 048
     Dates: start: 20090201
  6. KALIMATE [Concomitant]
     Indication: HYPERKALAEMIA
     Dosage: 5 MG, 1X/DAY
     Route: 048
     Dates: start: 20050101
  7. BIOFERMIN [Concomitant]
     Indication: DIARRHOEA
     Dosage: 1 G, 3X/DAY
     Route: 048
     Dates: start: 20050101
  8. PRONON [Concomitant]
     Indication: ATRIAL FIBRILLATION
     Dosage: 150 MG, 2X/DAY
     Route: 048
     Dates: start: 20060101
  9. MUCOSTA [Concomitant]
     Indication: GASTRITIS
     Dosage: 100 MG, 3X/DAY
     Route: 048
     Dates: start: 20060101
  10. ASPIRIN [Concomitant]
     Indication: ATRIAL FIBRILLATION
     Dosage: 100 MG, 1X/DAY
     Route: 048
     Dates: start: 20060101
  11. KM POWDER [Concomitant]
     Indication: GASTRITIS
     Dosage: 1 G, 2X/DAY
     Route: 048
     Dates: start: 20050101
  12. RISUMIC [Concomitant]
     Indication: PROCEDURAL HYPOTENSION
     Dosage: 10 MG, ONLY ON DAY OF HEMODIALYSIS
     Route: 048
     Dates: start: 20050101
  13. ROCALTROL [Concomitant]
     Indication: OSTEOPOROSIS
     Dosage: 0.5 UG, 2X/WEEK
     Route: 042
     Dates: start: 20070101
  14. PRIMPERAN TAB [Concomitant]
     Indication: GASTRITIS
     Dosage: 10 MG, 3X/WEEK
     Route: 041
     Dates: start: 20070101
  15. NESPO ^AMGEN^ [Concomitant]
     Indication: NEPHROGENIC ANAEMIA
     Dosage: 10 UG, WEEKLY
     Route: 042
     Dates: start: 20070101
  16. GLYCYRRHIZIC ACID [Concomitant]
     Indication: CHRONIC HEPATITIS
     Dosage: 2 DF, 3X/DAY
     Route: 048
     Dates: start: 20050101

REACTIONS (7)
  - DISSEMINATED INTRAVASCULAR COAGULATION [None]
  - EPISTAXIS [None]
  - HEPATITIS FULMINANT [None]
  - MENTAL DISORDER [None]
  - MULTI-ORGAN FAILURE [None]
  - OESOPHAGEAL VARICES HAEMORRHAGE [None]
  - PLATELET COUNT DECREASED [None]
